FAERS Safety Report 13129868 (Version 1)
Quarter: 2017Q1

REPORT INFORMATION
  Report Type: Spontaneous
  Country: US (occurrence: US)
  Receive Date: 20170118
  Receipt Date: 20170118
  Transmission Date: 20170428
  Serious: Yes (Other)
  Sender: FDA-Public Use
  Company Number: None

PATIENT
  Age: 14 Year
  Sex: Male
  Weight: 52.4 kg

DRUGS (1)
  1. DEPAKOTE SPRINKLES [Suspect]
     Active Substance: DIVALPROEX SODIUM
     Dosage: 6 TAB BID M,W,F, SUNDAY ORALLY
     Route: 048
     Dates: start: 201307, end: 20130805

REACTIONS (2)
  - Product substitution issue [None]
  - Seizure [None]

NARRATIVE: CASE EVENT DATE: 20130715
